FAERS Safety Report 6876276-8 (Version None)
Quarter: 2010Q3

REPORT INFORMATION
  Report Type: 
  Country: None (occurrence: None)
  Receive Date: 20100727
  Receipt Date: 20100719
  Transmission Date: 20110219
  Serious: Yes (Hospitalization)
  Sender: FDA-Public Use
  Company Number: B0663615A

PATIENT
  Sex: Male
  Weight: 98.3 kg

DRUGS (2)
  1. PAZOPANIB [Suspect]
     Indication: MALIGNANT NEOPLASM PROGRESSION
     Route: 048
     Dates: start: 20100607
  2. IFOSFAMIDE [Suspect]
     Indication: MALIGNANT NEOPLASM PROGRESSION
     Route: 042
     Dates: start: 20100614

REACTIONS (5)
  - ERYTHEMA [None]
  - NEUTROPENIA [None]
  - PAIN OF SKIN [None]
  - SKIN INFECTION [None]
  - SKIN WARM [None]
